FAERS Safety Report 8234052-8 (Version None)
Quarter: 2012Q1

REPORT INFORMATION
  Report Type: 
  Country: None (occurrence: None)
  Receive Date: 20120326
  Receipt Date: 20120326
  Transmission Date: 20120608
  Serious: Yes (Hospitalization)
  Sender: FDA-Public Use
  Company Number: None

PATIENT
  Age: 40 Year
  Sex: Female
  Weight: 53.523 kg

DRUGS (2)
  1. DAPTOMYCIN [Suspect]
     Indication: STAPHYLOCOCCAL ABSCESS
     Dosage: 500MG
     Route: 041
     Dates: start: 20120226, end: 20120302
  2. DAPTOMYCIN [Suspect]
     Indication: EXTRADURAL ABSCESS
     Dosage: 500MG
     Route: 041
     Dates: start: 20120226, end: 20120302

REACTIONS (7)
  - SINUS BRADYCARDIA [None]
  - CHEST PAIN [None]
  - RASH ERYTHEMATOUS [None]
  - ORAL DISORDER [None]
  - EOSINOPHILIC PNEUMONIA [None]
  - RASH PRURITIC [None]
  - DYSPNOEA [None]
